FAERS Safety Report 23475445 (Version 1)
Quarter: 2024Q1

REPORT INFORMATION
  Report Type: Report from Study
  Country: US (occurrence: US)
  Receive Date: 20240204
  Receipt Date: 20240204
  Transmission Date: 20240410
  Serious: No
  Sender: FDA-Public Use
  Company Number: US-EXELIXIS-CABO-23059582

PATIENT
  Sex: Male

DRUGS (6)
  1. CABOMETYX [Suspect]
     Active Substance: CABOZANTINIB S-MALATE
     Indication: Prostate cancer
     Dosage: UNK
  2. CALCIUM + VI [Concomitant]
  3. BICALUTAMIDE [Concomitant]
     Active Substance: BICALUTAMIDE
  4. ATORVASTATIN [Concomitant]
     Active Substance: ATORVASTATIN
  5. FLOMAX [Concomitant]
     Active Substance: TAMSULOSIN HYDROCHLORIDE
  6. LISINOPRIL [Concomitant]
     Active Substance: LISINOPRIL

REACTIONS (2)
  - Hot flush [Not Recovered/Not Resolved]
  - Off label use [Unknown]
